FAERS Safety Report 8915481 (Version 2)
Quarter: 2012Q4

REPORT INFORMATION
  Report Type: 
  Country: BR (occurrence: BR)
  Receive Date: 20121119
  Receipt Date: 20121214
  Transmission Date: 20130627
  Serious: Yes (Other)
  Sender: FDA-Public Use
  Company Number: BR-PFIZER INC-2012285533

PATIENT
  Age: 42 Year
  Sex: Female
  Weight: 78 kg

DRUGS (3)
  1. LOPID [Suspect]
     Indication: CHOLESTEROL BLOOD INCREASED
     Dosage: UNK
     Dates: start: 201207
  2. LOPID [Suspect]
     Indication: TRIGLYCERIDES HIGH
  3. FLUOXETINE HYDROCHLORIDE [Concomitant]
     Indication: NERVOUSNESS

REACTIONS (3)
  - Hypoacusis [Recovering/Resolving]
  - Feeling abnormal [Unknown]
  - Nervousness [Unknown]
